FAERS Safety Report 17264666 (Version 1)
Quarter: 2020Q1

REPORT INFORMATION
  Report Type: Spontaneous
  Country: US (occurrence: US)
  Receive Date: 20200113
  Receipt Date: 20200113
  Transmission Date: 20200409
  Serious: No
  Sender: FDA-Public Use
  Company Number: US-BAYER-2020-005291

PATIENT
  Sex: Female

DRUGS (3)
  1. FLONASE [MOMETASONE FUROATE] [Concomitant]
     Active Substance: MOMETASONE FUROATE
  2. LEVOTHYROXINE. [Concomitant]
     Active Substance: LEVOTHYROXINE
  3. CLARITIN [Suspect]
     Active Substance: LORATADINE
     Indication: MULTIPLE ALLERGIES
     Dosage: 1 DF, QD
     Route: 048
     Dates: start: 201902, end: 20200108

REACTIONS (8)
  - Anxiety [Unknown]
  - Panic attack [None]
  - Feeling jittery [Unknown]
  - Nervousness [Unknown]
  - Feeling hot [Unknown]
  - Dry mouth [Unknown]
  - Palpitations [Unknown]
  - Chills [Unknown]
